FAERS Safety Report 6679650 (Version 14)
Quarter: 2013Q3

REPORT INFORMATION
  Report Type: Spontaneous
  Country: US (occurrence: US)
  Receive Date: 20080624
  Receipt Date: 20130718
  Transmission Date: 20140515
  Serious: Yes (Congenital Anomaly, Other)
  Sender: FDA-Public Use
  Company Number: US-PFIZER INC-2008049931

PATIENT
  Sex: Female
  Weight: 3 kg

DRUGS (6)
  1. ZOLOFT [Suspect]
     Dosage: UNK
     Route: 064
     Dates: start: 2004
  2. VISTARIL [Concomitant]
     Indication: ANXIETY
     Dosage: AS NEEDED
     Route: 064
  3. PRENATAL VITAMINS [Concomitant]
     Route: 064
     Dates: end: 20060830
  4. WELLBUTRIN XL [Concomitant]
     Indication: ANXIETY
     Route: 064
     Dates: end: 20060830
  5. AMOXICILLIN [Concomitant]
     Route: 064
     Dates: start: 20060208
  6. TYLENOL [Concomitant]
     Route: 064

REACTIONS (13)
  - Foetal exposure during pregnancy [Unknown]
  - Pulmonary valve stenosis [Unknown]
  - Cerebral palsy [Unknown]
  - Atrial septal defect [Unknown]
  - Unresponsive to stimuli [Unknown]
  - Jaundice [Recovered/Resolved]
  - Lethargy [Unknown]
  - Gastrooesophageal reflux disease [Unknown]
  - Cognitive disorder [Unknown]
  - Anxiety [Unknown]
  - Sensory disturbance [Unknown]
  - Attention deficit/hyperactivity disorder [Unknown]
  - Speech disorder [Unknown]
